FAERS Safety Report 5357227-4 (Version None)
Quarter: 2007Q2

REPORT INFORMATION
  Report Type: 
  Country: None (occurrence: None)
  Receive Date: 20070614
  Receipt Date: 20070605
  Transmission Date: 20071010
  Serious: Yes (Other)
  Sender: FDA-Public Use
  Company Number: DE-JNJFOC-20070505014

PATIENT
  Age: 56 Year
  Sex: Male

DRUGS (1)
  1. TAVANIC [Suspect]
     Indication: UPPER RESPIRATORY TRACT INFECTION
     Route: 048
     Dates: start: 20060306, end: 20070312

REACTIONS (6)
  - CHOLESTASIS [None]
  - CHROMATURIA [None]
  - HEPATIC ENZYME INCREASED [None]
  - HEPATITIS TOXIC [None]
  - JAUNDICE [None]
  - PRURITUS [None]
